FAERS Safety Report 10664120 (Version 1)
Quarter: 2014Q4

REPORT INFORMATION
  Report Type: Spontaneous
  Country: US (occurrence: None)
  Receive Date: 20141217
  Receipt Date: 20141217
  Transmission Date: 20150529
  Serious: Yes (Other)
  Sender: FDA-Public Use
  Company Number: 2014AJA00036

PATIENT
  Age: 19 Year
  Sex: Male

DRUGS (4)
  1. LEVETIRACETAM. [Concomitant]
     Active Substance: LEVETIRACETAM
  2. LEVETIRACETAM. [Suspect]
     Active Substance: LEVETIRACETAM
     Indication: SEIZURE
     Route: 042
  3. LORAZEPAM. [Concomitant]
     Active Substance: LORAZEPAM
  4. OXCARBAZEPINE. [Concomitant]
     Active Substance: OXCARBAZEPINE

REACTIONS (3)
  - Blood creatine phosphokinase increased [None]
  - Renal impairment [None]
  - Muscle disorder [None]

NARRATIVE: CASE EVENT DATE: 20141022
